FAERS Safety Report 8340313-4 (Version None)
Quarter: 2012Q2

REPORT INFORMATION
  Report Type: 
  Country: None (occurrence: None)
  Receive Date: 20120507
  Receipt Date: 20120507
  Transmission Date: 20120825
  Serious: Yes (Life-Threatening, Hospitalization, Disabling)
  Sender: FDA-Public Use
  Company Number: None

PATIENT
  Age: 47 Year
  Sex: Female
  Weight: 76.203 kg

DRUGS (1)
  1. LEVOFLOXACIN [Suspect]
     Indication: BRONCHITIS
     Dosage: |DOSAGETEXT: 1 TABLET BY MOUTH||STRENGTH: 750MG||FREQ: DAILY|
     Dates: start: 20120423, end: 20120430

REACTIONS (1)
  - ANAPHYLACTIC REACTION [None]
